FAERS Safety Report 10721681 (Version 1)
Quarter: 2015Q1

REPORT INFORMATION
  Report Type: Spontaneous
  Country: US (occurrence: US)
  Receive Date: 20150119
  Receipt Date: 20150119
  Transmission Date: 20150721
  Serious: Yes (Other)
  Sender: FDA-Public Use
  Company Number: US-PFIZER INC-2015021194

PATIENT
  Age: 63 Year
  Sex: Female
  Weight: 64 kg

DRUGS (5)
  1. CELEBREX [Suspect]
     Active Substance: CELECOXIB
     Indication: OSTEOARTHRITIS
     Dosage: 100 MG, 2X/DAY (12 HOURS APART)
  2. TRAMADOL [Concomitant]
     Active Substance: TRAMADOL
     Dosage: 50 MG, 2X/DAY
  3. METHYLSULFONYLMETHANE [Concomitant]
     Active Substance: DIMETHYL SULFONE
     Dosage: 2 DF, 2X/DAY
  4. OSTEO BI-FLEX [Concomitant]
     Active Substance: CHONDROITIN SULFATE A\GLUCOSAMINE
  5. OCUVITE [Concomitant]
     Active Substance: VITAMINS
     Dosage: 1 DF, 1X/DAY

REACTIONS (3)
  - Arthritis [Unknown]
  - Cataract [Unknown]
  - Body height decreased [Unknown]

NARRATIVE: CASE EVENT DATE: 2005
